FAERS Safety Report 4869869-0 (Version None)
Quarter: 2005Q4

REPORT INFORMATION
  Report Type: 
  Country: None (occurrence: None)
  Receive Date: 20051230
  Receipt Date: 20050322
  Transmission Date: 20060501
  Serious: Yes (Other)
  Sender: FDA-Public Use
  Company Number: FR-MERCK-0503FRA00094

PATIENT
  Age: 42 Year
  Sex: Female

DRUGS (3)
  1. NOROXIN [Suspect]
     Indication: URINARY TRACT INFECTION
     Route: 048
     Dates: start: 20050220, end: 20050302
  2. METRONIDAZOLE [Concomitant]
     Indication: VAGINAL INFECTION
     Route: 067
     Dates: start: 20050209, end: 20050219
  3. TERBINAFINE [Concomitant]
     Indication: FUNGAL INFECTION
     Route: 048
     Dates: start: 20050101, end: 20050314

REACTIONS (2)
  - ABORTION SPONTANEOUS [None]
  - DRUG EXPOSURE DURING PREGNANCY [None]
